FAERS Safety Report 17662849 (Version 3)
Quarter: 2020Q2

REPORT INFORMATION
  Report Type: Spontaneous
  Country: CN (occurrence: CN)
  Receive Date: 20200413
  Receipt Date: 20200430
  Transmission Date: 20200713
  Serious: Yes (Death, Life-Threatening, Other)
  Sender: FDA-Public Use
  Company Number: NVSC2020CN097775

PATIENT
  Age: 82 Year
  Sex: Male
  Weight: 53 kg

DRUGS (1)
  1. ACLASTA [Suspect]
     Active Substance: ZOLEDRONIC ACID
     Indication: OSTEOPOROSIS
     Dosage: UNK (1 TIME/YEAR)
     Route: 042
     Dates: start: 20200326, end: 202004

REACTIONS (17)
  - Renal failure [Fatal]
  - Red blood cell sedimentation rate increased [Unknown]
  - Productive cough [Unknown]
  - Cardiac failure [Fatal]
  - Pleural effusion [Unknown]
  - Dyspnoea [Unknown]
  - Hepatic failure [Fatal]
  - White blood cell count increased [Unknown]
  - Procalcitonin increased [Unknown]
  - Chills [Fatal]
  - Urine output decreased [Unknown]
  - Pyrexia [Fatal]
  - Neutrophil count increased [Unknown]
  - C-reactive protein increased [Unknown]
  - Heart rate increased [Unknown]
  - Infection [Unknown]
  - Lethargy [Unknown]

NARRATIVE: CASE EVENT DATE: 20200327
